FAERS Safety Report 4404259-6 (Version None)
Quarter: 2004Q3

REPORT INFORMATION
  Report Type: 
  Country: None (occurrence: None)
  Receive Date: 20040720
  Receipt Date: 20040713
  Transmission Date: 20050211
  Serious: No
  Sender: FDA-Public Use
  Company Number: A044-002-005096

PATIENT
  Age: 75 Year
  Sex: Male

DRUGS (5)
  1. ARICEPT [Suspect]
     Indication: DEMENTIA
     Dosage: LOW DOSE, ORAL; 10 MG, 1 IN 1 D, ORAL; LOW DOSE ORAL
     Route: 048
     Dates: start: 20040101, end: 20040101
  2. ARICEPT [Suspect]
     Indication: DEMENTIA
     Dosage: LOW DOSE, ORAL; 10 MG, 1 IN 1 D, ORAL; LOW DOSE ORAL
     Route: 048
     Dates: start: 20040201, end: 20040101
  3. ARICEPT [Suspect]
     Indication: DEMENTIA
     Dosage: LOW DOSE, ORAL; 10 MG, 1 IN 1 D, ORAL; LOW DOSE ORAL
     Route: 048
     Dates: end: 20040201
  4. CIPRAMIL (CITALOPRAMIN HYDROBROMIDE) [Concomitant]
  5. MEMANTINE HCL [Concomitant]

REACTIONS (2)
  - CLUMSINESS [None]
  - OEDEMA PERIPHERAL [None]
